FAERS Safety Report 4660607-3 (Version None)
Quarter: 2005Q2

REPORT INFORMATION
  Report Type: 
  Country: None (occurrence: None)
  Receive Date: 20050425
  Receipt Date: 20040913
  Transmission Date: 20051028
  Serious: No
  Sender: FDA-Public Use
  Company Number: US090967

PATIENT
  Age: 52 Year
  Sex: Male

DRUGS (9)
  1. SENSIPAR [Suspect]
     Indication: HYPERPARATHYROIDISM SECONDARY
     Dosage: 30 MG, 1 IN 1 DAYS, PO
     Route: 048
     Dates: start: 20040830
  2. INSULIN GLARGINE [Concomitant]
  3. INSULIN LISPRO [Concomitant]
  4. AMLODIPINE BESYLATE [Concomitant]
  5. METOPROLOL SUCCINATE [Concomitant]
  6. GABAPENTIN [Concomitant]
  7. ISOSORBINE [Concomitant]
  8. AMIODARONE HYDROCHLORIDE [Concomitant]
  9. EPOGEN [Concomitant]

REACTIONS (2)
  - BLOOD GLUCOSE INCREASED [None]
  - HAEMOGLOBIN DECREASED [None]
